FAERS Safety Report 19932413 (Version 1)
Quarter: 2021Q4

REPORT INFORMATION
  Report Type: Spontaneous
  Country: US (occurrence: US)
  Receive Date: 20211006
  Receipt Date: 20211006
  Transmission Date: 20220303
  Serious: No
  Sender: FDA-Public Use
  Company Number: None

PATIENT
  Age: 73 Year
  Sex: Male

DRUGS (2)
  1. TOCILIZUMAB [Suspect]
     Active Substance: TOCILIZUMAB
     Indication: COVID-19
     Dosage: ?          OTHER ROUTE:IV
     Route: 042
     Dates: start: 20210802, end: 20210803
  2. TOCILIZUMAB [Suspect]
     Active Substance: TOCILIZUMAB
     Dosage: ?          OTHER ROUTE:IV
     Route: 042
     Dates: start: 20210802, end: 20210803

REACTIONS (3)
  - Gastrointestinal perforation [None]
  - Sigmoidectomy [None]
  - Explorative laparotomy [None]

NARRATIVE: CASE EVENT DATE: 20210826
